FAERS Safety Report 4496585-X (Version None)
Quarter: 2004Q4

REPORT INFORMATION
  Report Type: 
  Country: None (occurrence: None)
  Receive Date: 20041109
  Receipt Date: 20030715
  Transmission Date: 20050328
  Serious: Yes (Death, Life-Threatening, Hospitalization, Other)
  Sender: FDA-Public Use
  Company Number: FR-BRISTOL-MYERS SQUIBB COMPANY-12329637

PATIENT
  Age: 53 Year
  Sex: Male

DRUGS (7)
  1. GLUCOPHAGE [Suspect]
     Indication: DIABETES MELLITUS
     Dates: start: 20000615, end: 20030610
  2. ISOPTIN [Suspect]
     Route: 048
     Dates: start: 20000615, end: 20030610
  3. TENORMIN [Suspect]
     Route: 048
     Dates: start: 20000615, end: 20030610
  4. COVERSYL [Suspect]
     Route: 048
     Dates: start: 20000615, end: 20030610
  5. PLAVIX [Concomitant]
  6. LEXOMIL [Concomitant]
  7. TAHOR [Concomitant]
     Route: 048

REACTIONS (7)
  - CARDIO-RESPIRATORY ARREST [None]
  - HYPERGLYCAEMIA [None]
  - INFECTION [None]
  - LACTIC ACIDOSIS [None]
  - OVERDOSE [None]
  - RENAL FAILURE [None]
  - SINUS BRADYCARDIA [None]
